FAERS Safety Report 16998622 (Version 1)
Quarter: 2019Q4

REPORT INFORMATION
  Report Type: Spontaneous
  Country: DE (occurrence: DE)
  Receive Date: 20191105
  Receipt Date: 20191105
  Transmission Date: 20200122
  Serious: Yes (Other)
  Sender: FDA-Public Use
  Company Number: NVSC2019DE024640

PATIENT
  Age: 6 Year
  Sex: Male

DRUGS (1)
  1. TERBINAFIN - 1 A PHARMA 125 MG TABLETTEN [Suspect]
     Active Substance: TERBINAFINE HYDROCHLORIDE
     Indication: TINEA CAPITIS
     Dosage: 62.5 MG
     Route: 065

REACTIONS (2)
  - Off label use [Unknown]
  - Neutropenia [Unknown]
